FAERS Safety Report 21691866 (Version 1)
Quarter: 2022Q4

REPORT INFORMATION
  Report Type: Spontaneous
  Country: US (occurrence: US)
  Receive Date: 20221207
  Receipt Date: 20221207
  Transmission Date: 20230113
  Serious: No
  Sender: FDA-Public Use
  Company Number: US-GLENMARK PHARMACEUTICALS-2022GMK073608

PATIENT

DRUGS (1)
  1. CICLOPIROX OLAMINE [Suspect]
     Active Substance: CICLOPIROX OLAMINE
     Indication: Tinea pedis
     Dosage: UNK
     Route: 061

REACTIONS (3)
  - Tinea pedis [Unknown]
  - Infection [Unknown]
  - Drug ineffective [Unknown]
